FAERS Safety Report 9055589 (Version 1)
Quarter: 2013Q1

REPORT INFORMATION
  Report Type: Spontaneous
  Country: DK (occurrence: FR)
  Receive Date: 20130206
  Receipt Date: 20130206
  Transmission Date: 20140127
  Serious: Yes (Hospitalization)
  Sender: FDA-Public Use
  Company Number: FR-FRI-1000042410

PATIENT
  Age: 82 None
  Sex: Female

DRUGS (7)
  1. CITALOPRAM [Suspect]
     Route: 048
  2. CORDARONE [Suspect]
     Route: 048
  3. EUPHYLLINE [Suspect]
     Route: 048
     Dates: end: 20120925
  4. KARDEGIC [Concomitant]
     Route: 048
  5. LASILIX [Concomitant]
     Route: 048
  6. SYMBICORT TU [Concomitant]
  7. IMOVANE [Concomitant]

REACTIONS (2)
  - Convulsion [Recovered/Resolved]
  - Drug interaction [Recovered/Resolved]
